FAERS Safety Report 8287161-1 (Version None)
Quarter: 2012Q2

REPORT INFORMATION
  Report Type: 
  Country: None (occurrence: None)
  Receive Date: 20120416
  Receipt Date: 20120405
  Transmission Date: 20120825
  Serious: Yes (Hospitalization)
  Sender: FDA-Public Use
  Company Number: FR-ROCHE-1057596

PATIENT
  Sex: Female

DRUGS (18)
  1. MABTHERA [Suspect]
     Indication: RHEUMATOID ARTHRITIS
     Dates: start: 20091001
  2. NEXIUM [Suspect]
     Indication: PRODUCT USED FOR UNKNOWN INDICATION
     Dates: end: 20120315
  3. ESCITALOPRAM [Concomitant]
     Indication: DEPRESSION
     Dates: start: 20120302, end: 20120315
  4. XANAX [Concomitant]
  5. FOLIC ACID [Concomitant]
  6. FELODIPINE [Concomitant]
  7. ZOLPIDEM TARTRATE [Concomitant]
  8. ACETAMINOPHEN [Concomitant]
  9. ACTONEL [Suspect]
     Indication: PRODUCT USED FOR UNKNOWN INDICATION
     Dates: end: 20120315
  10. AMITRIPTYLINE HCL [Suspect]
     Indication: PRODUCT USED FOR UNKNOWN INDICATION
     Dosage: 40MG/ML
     Dates: end: 20120303
  11. VALSARTAN [Concomitant]
  12. LYRICA [Suspect]
     Indication: PAIN
     Route: 048
     Dates: end: 20120315
  13. ENBREL [Suspect]
     Indication: RHEUMATOID ARTHRITIS
     Route: 058
     Dates: start: 20111018, end: 20120303
  14. METHOTREXATE SODIUM [Suspect]
     Indication: RHEUMATOID ARTHRITIS
     Route: 058
     Dates: start: 19970101, end: 20120315
  15. PREDNISONE TAB [Concomitant]
  16. NEXIUM [Concomitant]
  17. SULFARLEM [Concomitant]
  18. VOLTARENE (FRANCE) [Concomitant]

REACTIONS (1)
  - AGRANULOCYTOSIS [None]
